FAERS Safety Report 13382104 (Version 1)
Quarter: 2017Q1

REPORT INFORMATION
  Report Type: Report from Study
  Country: NL (occurrence: NL)
  Receive Date: 20170329
  Receipt Date: 20170329
  Transmission Date: 20170429
  Serious: Yes (Other)
  Sender: FDA-Public Use
  Company Number: PHHY2017NL043927

PATIENT
  Age: 52 Year
  Sex: Male

DRUGS (4)
  1. SANDOSTATINE LAR [Suspect]
     Active Substance: OCTREOTIDE ACETATE
     Indication: NEUROENDOCRINE TUMOUR
     Dosage: 10 MG/2 ML, ONCE EVERY 4 WEEKS
     Route: 030
  2. SANDOSTATINE LAR [Suspect]
     Active Substance: OCTREOTIDE ACETATE
     Dosage: 10 MG/2 ML, ONCE EVERY 4 WEEKS
     Route: 030
     Dates: start: 20160518
  3. SANDOSTATINE LAR [Suspect]
     Active Substance: OCTREOTIDE ACETATE
     Dosage: 10 MG/2 ML, ONCE EVERY 4 WEEKS
     Route: 030
     Dates: start: 20170321
  4. SANDOSTATINE LAR [Suspect]
     Active Substance: OCTREOTIDE ACETATE
     Dosage: 10 MG/2 ML, ONCE EVERY 4 WEEKS
     Route: 030
     Dates: start: 20170222

REACTIONS (5)
  - Ear disorder [Unknown]
  - Haematochezia [Recovered/Resolved with Sequelae]
  - Lymphadenopathy [Recovering/Resolving]
  - Swelling face [Recovering/Resolving]
  - Dizziness [Unknown]

NARRATIVE: CASE EVENT DATE: 20170309
